FAERS Safety Report 20879046 (Version 1)
Quarter: 2022Q2

REPORT INFORMATION
  Report Type: Spontaneous
  Country: US (occurrence: None)
  Receive Date: 20220526
  Receipt Date: 20220526
  Transmission Date: 20220721
  Serious: Yes (Hospitalization, Disabling, Other)
  Sender: FDA-Public Use
  Company Number: None

PATIENT
  Age: 48 Year
  Sex: Male
  Weight: 99.9 kg

DRUGS (2)
  1. CIPRO [Suspect]
     Active Substance: CIPROFLOXACIN HYDROCHLORIDE
     Indication: Diverticulitis
     Dates: start: 20201229, end: 20210105
  2. LEVAQUIN [Suspect]
     Active Substance: LEVOFLOXACIN

REACTIONS (8)
  - Neuropathy peripheral [None]
  - Anxiety [None]
  - Panic attack [None]
  - Vertigo [None]
  - Nystagmus [None]
  - Disability [None]
  - Loss of personal independence in daily activities [None]
  - Inner ear disorder [None]

NARRATIVE: CASE EVENT DATE: 20201229
